FAERS Safety Report 8961132 (Version 1)
Quarter: 2012Q4

REPORT INFORMATION
  Report Type: 
  Country: US (occurrence: US)
  Receive Date: 20121213
  Receipt Date: 20121213
  Transmission Date: 20130627
  Serious: No
  Sender: FDA-Public Use
  Company Number: US-ALLERGAN-1215235US

PATIENT
  Age: 82 Year
  Sex: Male

DRUGS (8)
  1. LUMIGAN� 0.01% [Suspect]
     Indication: INCREASED INTRAOCULAR PRESSURE
     Dosage: 1 Gtt, qd
     Route: 047
     Dates: start: 201209
  2. HYDROCODONE [Concomitant]
     Indication: PAIN
     Dosage: UNK UNK, bid
     Route: 048
  3. CITALOPRAM [Concomitant]
     Indication: DEPRESSION
     Dosage: UNK UNK, qd
     Route: 048
  4. CITALOPRAM [Concomitant]
     Indication: ANXIETY
  5. DILTIAZEM [Concomitant]
     Indication: HYPERTENSION
     Dosage: 18 mg, qd
     Route: 048
  6. HYDROCHLOROTHIAZIDE [Concomitant]
     Indication: HYPERTENSION
     Dosage: 25 mg, qd
     Route: 048
  7. TEMAZEPAM [Concomitant]
     Indication: INSOMNIA
     Dosage: 30 mg, qhs
     Route: 048
  8. LISINOPRIL [Concomitant]
     Indication: HYPERTENSION
     Dosage: 10 mg, qd
     Route: 048

REACTIONS (1)
  - Blood pressure systolic increased [Unknown]
